FAERS Safety Report 15309274 (Version 2)
Quarter: 2018Q4

REPORT INFORMATION
  Report Type: Spontaneous
  Country: CA (occurrence: CA)
  Receive Date: 20180823
  Receipt Date: 20180921
  Transmission Date: 20190204
  Serious: No
  Sender: FDA-Public Use
  Company Number: CA-IGSA-SR10006438

PATIENT
  Age: 75 Year
  Sex: Male

DRUGS (3)
  1. ALBUMIN (HUMAN) [Suspect]
     Active Substance: ALBUMIN HUMAN
     Indication: ACUTE KIDNEY INJURY
     Dosage: 100 ML, SINGLE
     Route: 042
     Dates: start: 20180514, end: 20180514
  2. ZOFRAN [Concomitant]
     Active Substance: ONDANSETRON HYDROCHLORIDE
  3. ALBUMIN (HUMAN) [Suspect]
     Active Substance: ALBUMIN HUMAN
     Dosage: 200 ML, SINGLE
     Route: 042
     Dates: start: 20180513, end: 20180513

REACTIONS (3)
  - Transfusion-related circulatory overload [Unknown]
  - Body temperature increased [Unknown]
  - Tachycardia [Unknown]

NARRATIVE: CASE EVENT DATE: 20180514
